FAERS Safety Report 6621094-9 (Version None)
Quarter: 2010Q1

REPORT INFORMATION
  Report Type: 
  Country: None (occurrence: None)
  Receive Date: 20100309
  Receipt Date: 20100303
  Transmission Date: 20100710
  Serious: Yes (Other)
  Sender: FDA-Public Use
  Company Number: B0637665A

PATIENT
  Age: 57 Year
  Sex: Female

DRUGS (2)
  1. TYKERB [Suspect]
     Indication: BREAST CANCER
     Dosage: 1250MG PER DAY
     Route: 048
     Dates: start: 20100207
  2. XELODA [Suspect]
     Indication: DRUG USE FOR UNKNOWN INDICATION
     Dosage: 2000MG PER DAY
     Route: 048
     Dates: start: 20100207

REACTIONS (1)
  - JAUNDICE [None]
